FAERS Safety Report 24778147 (Version 1)
Quarter: 2024Q4

REPORT INFORMATION
  Report Type: Spontaneous
  Country: CZ (occurrence: CZ)
  Receive Date: 20241226
  Receipt Date: 20241226
  Transmission Date: 20250114
  Serious: Yes (Other)
  Sender: BAYER HEALTHCARE PHARMACEUTICALS INC.
  Company Number: None

PATIENT
  Age: 45 Year
  Sex: Female
  Weight: 70 kg

DRUGS (4)
  1. AVELOX [Suspect]
     Active Substance: MOXIFLOXACIN HYDROCHLORIDE
     Indication: Paranasal sinus inflammation
     Dosage: 400 MG, QD
     Route: 048
     Dates: start: 20241111, end: 20241117
  2. BISOPROLOL [Concomitant]
     Active Substance: BISOPROLOL
     Indication: Arrhythmia
     Dosage: ONE DOSE IN THE MORNING, SOMETIMES ANOTHER DOSE (2.5 MG) IN THE EVENING
     Route: 048
  3. BISOPROLOL [Concomitant]
     Active Substance: BISOPROLOL
     Indication: Arrhythmia
     Dosage: WITH AVELOX THE DOSAGE WAS INCREASED TO 5 MG IN THE MORNING AND 2.5 MG IN THE EVENING.
     Route: 048
  4. EUTHYROX [Concomitant]
     Active Substance: LEVOTHYROXINE SODIUM
     Indication: Hypothyroidism
     Dosage: 1-0-0
     Route: 048

REACTIONS (3)
  - Anxiety [Not Recovered/Not Resolved]
  - Depression [Not Recovered/Not Resolved]
  - Arrhythmia [Recovered/Resolved]

NARRATIVE: CASE EVENT DATE: 20241111
